FAERS Safety Report 24233034 (Version 1)
Quarter: 2024Q3

REPORT INFORMATION
  Report Type: Spontaneous
  Country: US (occurrence: US)
  Receive Date: 20240821
  Receipt Date: 20240821
  Transmission Date: 20241017
  Serious: Yes (Other)
  Sender: HIKMA
  Company Number: HIKM2407083

PATIENT

DRUGS (2)
  1. DUPIXENT [Suspect]
     Active Substance: DUPILUMAB
     Indication: Product used for unknown indication
     Dosage: UNKNOWN
     Route: 065
  2. PREDNISONE [Suspect]
     Active Substance: PREDNISONE
     Indication: Product used for unknown indication
     Dosage: UNKNOWN
     Route: 065

REACTIONS (8)
  - Neuropathy peripheral [Recovered/Resolved]
  - Weight increased [Unknown]
  - Headache [Unknown]
  - Nausea [Unknown]
  - Acne [Unknown]
  - Pruritus [Recovered/Resolved]
  - Rash [Unknown]
  - Condition aggravated [Unknown]
